FAERS Safety Report 7345249-3 (Version None)
Quarter: 2011Q1

REPORT INFORMATION
  Report Type: 
  Country: None (occurrence: None)
  Receive Date: 20110310
  Receipt Date: 20110302
  Transmission Date: 20110831
  Serious: Yes (Hospitalization)
  Sender: FDA-Public Use
  Company Number: ES-ELI_LILLY_AND_COMPANY-ES201103000840

PATIENT
  Age: 15 Year
  Sex: Female

DRUGS (2)
  1. STRATTERA [Suspect]
     Dosage: 18 MG, UNK
     Route: 048
  2. STRATTERA [Suspect]
     Indication: ATTENTION DEFICIT/HYPERACTIVITY DISORDER
     Dosage: 40 MG, UNK
     Route: 048
     Dates: start: 20100910

REACTIONS (8)
  - GASTROENTERITIS [None]
  - PYREXIA [None]
  - MYALGIA [None]
  - DIARRHOEA [None]
  - ARTHRALGIA [None]
  - WEIGHT DECREASED [None]
  - FATIGUE [None]
  - ABDOMINAL PAIN UPPER [None]
